FAERS Safety Report 8093496-8 (Version None)
Quarter: 2012Q1

REPORT INFORMATION
  Report Type: 
  Country: None (occurrence: None)
  Receive Date: 20120129
  Receipt Date: 20111017
  Transmission Date: 20120608
  Serious: No
  Sender: FDA-Public Use
  Company Number: US-ABBOTT-11P-163-0865664-00

PATIENT
  Age: 61 Year
  Sex: Female

DRUGS (11)
  1. METHOTREXATE [Concomitant]
     Indication: PSORIATIC ARTHROPATHY
  2. LISINOPRIL [Concomitant]
     Indication: HYPERTENSION
  3. PROZAC [Concomitant]
     Indication: ANXIETY
  4. ESTRADIOL [Concomitant]
     Indication: OESTROGEN REPLACEMENT THERAPY
  5. TRAMADOL HCL [Concomitant]
     Indication: PAIN
  6. CRESTOR [Concomitant]
     Indication: BLOOD CHOLESTEROL INCREASED
  7. HUMIRA [Suspect]
     Indication: PSORIATIC ARTHROPATHY
     Dates: start: 20111001
  8. XANAX [Concomitant]
     Indication: ANXIETY
  9. FOLIC ACID [Concomitant]
     Indication: VITAMIN SUPPLEMENTATION
  10. ESTRADIOL [Concomitant]
     Indication: HYSTERECTOMY
  11. ALLEGRA [Concomitant]
     Indication: HYPERSENSITIVITY

REACTIONS (2)
  - NASAL CONGESTION [None]
  - UPPER-AIRWAY COUGH SYNDROME [None]
